FAERS Safety Report 9936352 (Version 1)
Quarter: 2014Q1

REPORT INFORMATION
  Report Type: Spontaneous
  Country: US (occurrence: US)
  Receive Date: 20140228
  Receipt Date: 20140228
  Transmission Date: 20141002
  Serious: No
  Sender: FDA-Public Use
  Company Number: US-AMGEN-USASP2014002896

PATIENT
  Age: 55 Year
  Sex: Female

DRUGS (8)
  1. ENBREL [Suspect]
     Indication: PSORIATIC ARTHROPATHY
     Dosage: 25 MG, QWK
     Route: 058
  2. TOPAMAX [Concomitant]
     Dosage: UNK
  3. MS CONTIN [Concomitant]
     Dosage: UNK
  4. OXYCODONE [Concomitant]
     Dosage: UNK
  5. ESTRATEST [Concomitant]
     Dosage: UNK
  6. ZOLOFT [Concomitant]
     Dosage: UNK
  7. TRAZODONE [Concomitant]
     Dosage: UNK
  8. PRILOSEC                           /00661201/ [Concomitant]
     Dosage: UNK

REACTIONS (2)
  - Abdominal distension [Unknown]
  - Weight increased [Unknown]
